FAERS Safety Report 7274040-1 (Version None)
Quarter: 2011Q1

REPORT INFORMATION
  Report Type: 
  Country: None (occurrence: None)
  Receive Date: 20110203
  Receipt Date: 20110128
  Transmission Date: 20110831
  Serious: Yes (Hospitalization)
  Sender: FDA-Public Use
  Company Number: US-BRISTOL-MYERS SQUIBB COMPANY-15020589

PATIENT
  Age: 73 Year
  Sex: Female
  Weight: 59 kg

DRUGS (7)
  1. ONDANSETRON [Concomitant]
  2. PROCHLORPERAZINE [Concomitant]
  3. TAXOL [Suspect]
     Indication: NON-SMALL CELL LUNG CANCER
  4. ERBITUX [Suspect]
     Indication: NON-SMALL CELL LUNG CANCER
     Dosage: RECENT INF:9MAR10. COURSE NO ON WHICH EVENT OCCUR:71,78. TOTAL COURSE:78;RECENT-16MAR10,400MG
     Dates: start: 20091229
  5. CARBOPLATIN [Suspect]
     Indication: NON-SMALL CELL LUNG CANCER
  6. LORAZEPAM [Concomitant]
  7. METOCLOPRAMIDE [Concomitant]

REACTIONS (4)
  - DEHYDRATION [None]
  - OESOPHAGITIS [None]
  - WHITE BLOOD CELL COUNT DECREASED [None]
  - DIARRHOEA [None]
